FAERS Safety Report 23621676 (Version 3)
Quarter: 2024Q3

REPORT INFORMATION
  Report Type: Spontaneous
  Country: CA (occurrence: CA)
  Receive Date: 20240312
  Receipt Date: 20240710
  Transmission Date: 20241017
  Serious: Yes (Other)
  Sender: SANOFI AVENTIS
  Company Number: CA-SANOFI-01969830

PATIENT
  Sex: Female

DRUGS (1)
  1. APIDRA [Suspect]
     Active Substance: INSULIN GLULISINE
     Dosage: 22 IU, TID

REACTIONS (4)
  - Cerebrovascular accident [Unknown]
  - Aphonia [Unknown]
  - Accidental exposure to product [Unknown]
  - Exposure via skin contact [Unknown]
